FAERS Safety Report 4320385-4 (Version None)
Quarter: 2004Q1

REPORT INFORMATION
  Report Type: 
  Country: None (occurrence: None)
  Receive Date: 20040317
  Receipt Date: 20040310
  Transmission Date: 20041129
  Serious: Yes (Hospitalization, Other)
  Sender: FDA-Public Use
  Company Number: 2004-03-0646

PATIENT
  Age: 12 Year
  Sex: Female

DRUGS (2)
  1. GENTAMICIN [Suspect]
     Indication: APPENDICITIS PERFORATED
     Dosage: 7.5 MG/KG QD INTRAVENOUS
     Route: 042
  2. METRONIDAZOLE [Concomitant]

REACTIONS (7)
  - BARTTER'S SYNDROME [None]
  - DIZZINESS [None]
  - HYPOAESTHESIA [None]
  - MUSCLE SPASMS [None]
  - ORTHOSTATIC HYPOTENSION [None]
  - PAIN IN EXTREMITY [None]
  - PARAESTHESIA [None]
